FAERS Safety Report 16923890 (Version 3)
Quarter: 2020Q1

REPORT INFORMATION
  Report Type: Spontaneous
  Country: GB (occurrence: GB)
  Receive Date: 20191016
  Receipt Date: 20200116
  Transmission Date: 20200409
  Serious: Yes (Hospitalization, Other)
  Sender: FDA-Public Use
  Company Number: GB-ACCORD-157973

PATIENT
  Age: 69 Year
  Sex: Female

DRUGS (15)
  1. LISINOPRIL. [Suspect]
     Active Substance: LISINOPRIL
     Indication: HYPERTENSION
     Dosage: 20 MG, QD
     Route: 048
  2. BISOPROLOL [Concomitant]
     Active Substance: BISOPROLOL
  3. CODEINE [Concomitant]
     Active Substance: CODEINE
  4. ACETYLSALICYLIC ACID [Concomitant]
     Active Substance: ASPIRIN
  5. AMLODIPINE [Concomitant]
     Active Substance: AMLODIPINE BESYLATE
  6. ISOSORBIDE. [Concomitant]
     Active Substance: ISOSORBIDE
  7. PIROXICAM. [Concomitant]
     Active Substance: PIROXICAM
  8. SALBUTAMOL [Concomitant]
     Active Substance: ALBUTEROL
     Dosage: 100MCG/DOSE
  9. ALLOPURINOL. [Concomitant]
     Active Substance: ALLOPURINOL
  10. FLUOXETINE [Concomitant]
     Active Substance: FLUOXETINE HYDROCHLORIDE
  11. LISINOPRIL. [Suspect]
     Active Substance: LISINOPRIL
     Indication: HYPERTENSION
     Route: 048
  12. LEVOTHYROXINE SODIUM. [Concomitant]
     Active Substance: LEVOTHYROXINE SODIUM
  13. TRIMBOW [Concomitant]
     Active Substance: BECLOMETHASONE DIPROPIONATE\FORMOTEROL FUMARATE\GLYCOPYRROLATE
     Dosage: 87MCG/5MCG/9MCG/DOSE
  14. LEVOTHYROXINE. [Concomitant]
     Active Substance: LEVOTHYROXINE
  15. FUROSEMIDE. [Concomitant]
     Active Substance: FUROSEMIDE

REACTIONS (4)
  - Hypoaesthesia [Not Recovered/Not Resolved]
  - Swollen tongue [Not Recovered/Not Resolved]
  - Angioedema [Recovering/Resolving]
  - Lip swelling [Not Recovered/Not Resolved]
